FAERS Safety Report 4608649-8 (Version None)
Quarter: 2005Q1

REPORT INFORMATION
  Report Type: 
  Country: None (occurrence: None)
  Receive Date: 20050315
  Receipt Date: 20050303
  Transmission Date: 20050727
  Serious: Yes (Hospitalization)
  Sender: FDA-Public Use
  Company Number: DEWYE459525FEB05

PATIENT

DRUGS (4)
  1. ENBREL [Suspect]
     Indication: RHEUMATOID ARTHRITIS
     Route: 058
     Dates: start: 20020901, end: 20050201
  2. METHOTREXATE [Concomitant]
     Indication: RHEUMATOID ARTHRITIS
     Route: 030
     Dates: start: 20040901
  3. EVISTA [Concomitant]
     Route: 048
  4. CELEBREX [Concomitant]
     Dosage: 200 - 400MG/DAY
     Route: 048

REACTIONS (1)
  - SCLERODERMA [None]
